FAERS Safety Report 8421211-4 (Version None)
Quarter: 2012Q2

REPORT INFORMATION
  Report Type: 
  Country: None (occurrence: None)
  Receive Date: 20120608
  Receipt Date: 20120604
  Transmission Date: 20120825
  Serious: Yes (Hospitalization, Other)
  Sender: FDA-Public Use
  Company Number: US-PFIZER INC-2010157029

PATIENT
  Sex: Male

DRUGS (7)
  1. SIMVASTATIN [Concomitant]
     Indication: BLOOD CHOLESTEROL
     Dosage: UNK
     Dates: start: 20070101, end: 20090101
  2. AMOXICILLIN [Concomitant]
     Indication: ANTIBIOTIC THERAPY
     Dosage: UNK
     Dates: start: 20060101, end: 20090101
  3. VALSARTAN [Concomitant]
     Indication: HYPERTENSION
     Dosage: UNK
     Dates: start: 20070101, end: 20090101
  4. LISINOPRIL [Concomitant]
     Indication: HYPERTENSION
     Dosage: UNK
     Dates: start: 20060101
  5. CHANTIX [Suspect]
     Indication: SMOKING CESSATION THERAPY
     Dosage: STARTER AND CONTINUOUS MONTH PACK
     Dates: start: 20061020, end: 20061201
  6. CHANTIX [Suspect]
     Dosage: STARTER AND CONTINUOUS MONTH PACK
     Dates: start: 20081001, end: 20090201
  7. CHANTIX [Suspect]
     Dosage: 1 MG, UNK
     Dates: start: 20090212, end: 20090201

REACTIONS (6)
  - WEIGHT DECREASED [None]
  - DEPRESSION [None]
  - ANXIETY [None]
  - INSOMNIA [None]
  - SUICIDE ATTEMPT [None]
  - SUICIDAL IDEATION [None]
